FAERS Safety Report 22357332 (Version 1)
Quarter: 2023Q2

REPORT INFORMATION
  Report Type: Report from Study
  Country: DE (occurrence: DE)
  Receive Date: 20230524
  Receipt Date: 20230524
  Transmission Date: 20230721
  Serious: Yes (Other)
  Sender: FDA-Public Use
  Company Number: DE-JNJFOC-20230547741

PATIENT

DRUGS (1)
  1. IBRUTINIB [Suspect]
     Active Substance: IBRUTINIB
     Indication: Chronic lymphocytic leukaemia
     Route: 048

REACTIONS (12)
  - Dyspnoea [Unknown]
  - Vomiting [Unknown]
  - Haemorrhage [Unknown]
  - Headache [Unknown]
  - Diarrhoea [Unknown]
  - Nausea [Unknown]
  - Decreased appetite [Unknown]
  - Adverse drug reaction [Unknown]
  - Rash [Unknown]
  - Neutropenia [Unknown]
  - Skin toxicity [Unknown]
  - Gastrointestinal disorder [Unknown]
